FAERS Safety Report 8098291-1 (Version None)
Quarter: 2012Q1

REPORT INFORMATION
  Report Type: 
  Country: None (occurrence: None)
  Receive Date: 20120128
  Receipt Date: 20110816
  Transmission Date: 20120608
  Serious: No
  Sender: FDA-Public Use
  Company Number: US-ABBOTT-11P-163-0846961-00

PATIENT
  Sex: Male
  Weight: 90.8 kg

DRUGS (4)
  1. IBUPROFEN [Concomitant]
     Indication: PAIN
     Dosage: 1-2 DAILY
  2. HUMIRA [Suspect]
     Indication: RHEUMATOID ARTHRITIS
     Dates: start: 20100101
  3. METHOTREXATE [Concomitant]
     Indication: RHEUMATOID ARTHRITIS
  4. FOLIC ACID [Concomitant]
     Indication: VITAMIN SUPPLEMENTATION

REACTIONS (6)
  - ASTHENIA [None]
  - INSOMNIA [None]
  - ARTHRALGIA [None]
  - MUSCULAR WEAKNESS [None]
  - FATIGUE [None]
  - DRUG DOSE OMISSION [None]
